FAERS Safety Report 23293400 (Version 1)
Quarter: 2023Q4

REPORT INFORMATION
  Report Type: Spontaneous
  Country: US (occurrence: US)
  Receive Date: 20231213
  Receipt Date: 20231213
  Transmission Date: 20240110
  Serious: No
  Sender: FDA-Public Use
  Company Number: US-NOVOPROD-1055945

PATIENT
  Sex: Female

DRUGS (1)
  1. LEVEMIR [Suspect]
     Active Substance: INSULIN DETEMIR
     Indication: Product used for unknown indication
     Dosage: 60 IU, QD(2 INJECTIONS OF 30 UNITS DAILY)
     Route: 058
     Dates: start: 202304

REACTIONS (2)
  - COVID-19 [Not Recovered/Not Resolved]
  - Device difficult to use [Not Recovered/Not Resolved]
